FAERS Safety Report 4795781-1 (Version None)
Quarter: 2005Q3

REPORT INFORMATION
  Report Type: 
  Country: None (occurrence: None)
  Receive Date: 20050916
  Receipt Date: 20040913
  Transmission Date: 20060218
  Serious: Yes (Other)
  Sender: FDA-Public Use
  Company Number: US-JNJFOC-20040706414

PATIENT
  Age: 43 Year
  Sex: Female
  Weight: 68.0396 kg

DRUGS (7)
  1. TOPAMAX [Suspect]
     Indication: BIPOLAR DISORDER
     Dosage: 800 MG, 1 IN 1 DAY, ORAL; SEE IMAGE
     Route: 048
     Dates: start: 20000926, end: 20010820
  2. TOPAMAX [Suspect]
     Indication: BIPOLAR DISORDER
     Dosage: 800 MG, 1 IN 1 DAY, ORAL; SEE IMAGE
     Route: 048
     Dates: start: 20010821, end: 20030915
  3. TOPAMAX [Suspect]
     Indication: BIPOLAR DISORDER
     Dosage: 800 MG, 1 IN 1 DAY, ORAL; SEE IMAGE
     Route: 048
     Dates: start: 20030916, end: 20040101
  4. TOPAMAX [Suspect]
     Indication: BIPOLAR DISORDER
     Dosage: 800 MG, 1 IN 1 DAY, ORAL; SEE IMAGE
     Route: 048
     Dates: start: 20040101
  5. LAMICTAL [Concomitant]
  6. DEPAKOTE ER [Concomitant]
  7. NEURONTIN [Concomitant]

REACTIONS (3)
  - BLOOD CHLORIDE INCREASED [None]
  - CARBON DIOXIDE DECREASED [None]
  - THERAPEUTIC RESPONSE UNEXPECTED [None]
